FAERS Safety Report 4815376-0 (Version None)
Quarter: 2005Q4

REPORT INFORMATION
  Report Type: 
  Country: None (occurrence: None)
  Receive Date: 20051027
  Receipt Date: 20051018
  Transmission Date: 20060501
  Serious: No
  Sender: FDA-Public Use
  Company Number: HQWYE120320OCT05

PATIENT
  Age: 6 Year
  Sex: Male

DRUGS (1)
  1. ZOSYN [Suspect]
     Indication: OSTEOMYELITIS ACUTE

REACTIONS (9)
  - ABDOMINAL PAIN [None]
  - BLOOD PRESSURE DECREASED [None]
  - CHILLS [None]
  - FEBRILE NEUTROPENIA [None]
  - HAEMATOCRIT DECREASED [None]
  - HAEMOGLOBIN DECREASED [None]
  - PLATELET COUNT DECREASED [None]
  - RESPIRATORY RATE INCREASED [None]
  - WHITE BLOOD CELL COUNT DECREASED [None]
